FAERS Safety Report 17951711 (Version 1)
Quarter: 2020Q2

REPORT INFORMATION
  Report Type: Report from Study
  Country: CN (occurrence: CN)
  Receive Date: 20200626
  Receipt Date: 20200626
  Transmission Date: 20200714
  Serious: Yes (Death, Other)
  Sender: FDA-Public Use
  Company Number: CN-BRISTOL-MYERS SQUIBB COMPANY-BMS-2020-050099

PATIENT
  Age: 62 Year
  Sex: Male

DRUGS (1)
  1. NIVOLUMAB [Suspect]
     Active Substance: NIVOLUMAB
     Indication: NON-SMALL CELL LUNG CANCER
     Dosage: 140 MILLIGRAM, Q3WK
     Route: 042
     Dates: start: 202005, end: 202006

REACTIONS (3)
  - Malignant neoplasm progression [Fatal]
  - Haemothorax [Unknown]
  - Off label use [Unknown]

NARRATIVE: CASE EVENT DATE: 20200620
